FAERS Safety Report 4842957-0 (Version None)
Quarter: 2005Q4

REPORT INFORMATION
  Report Type: 
  Country: None (occurrence: None)
  Receive Date: 20051130
  Receipt Date: 20051018
  Transmission Date: 20060501
  Serious: Yes (Other)
  Sender: FDA-Public Use
  Company Number: SGB1-2005-00476

PATIENT
  Age: 61 Year
  Sex: Male
  Weight: 58.9 kg

DRUGS (30)
  1. LANTANUM CARBONATE CHEWABLE [Suspect]
     Indication: HYPERPHOSPHATAEMIA
     Dosage: SEE IMAGE
     Route: 048
     Dates: start: 20050322, end: 20050328
  2. LANTANUM CARBONATE CHEWABLE [Suspect]
     Indication: HYPERPHOSPHATAEMIA
     Dosage: SEE IMAGE
     Route: 048
     Dates: start: 20050329, end: 20050411
  3. LANTANUM CARBONATE CHEWABLE [Suspect]
     Indication: HYPERPHOSPHATAEMIA
     Dosage: SEE IMAGE
     Route: 048
     Dates: start: 20050412, end: 20050425
  4. LANTANUM CARBONATE CHEWABLE [Suspect]
     Indication: HYPERPHOSPHATAEMIA
     Dosage: SEE IMAGE
     Route: 048
     Dates: start: 20050426, end: 20050516
  5. LANTANUM CARBONATE CHEWABLE [Suspect]
     Indication: HYPERPHOSPHATAEMIA
     Dosage: SEE IMAGE
     Route: 048
     Dates: start: 20050517, end: 20050530
  6. LANTANUM CARBONATE CHEWABLE [Suspect]
     Indication: HYPERPHOSPHATAEMIA
     Dosage: SEE IMAGE
     Route: 048
     Dates: start: 20050531
  7. RISUMIC (AMEZINIUM METILSULFATE) [Suspect]
     Indication: BLOOD PRESSURE DECREASED
     Dosage: SEE IMAGE
     Route: 048
     Dates: start: 20050412, end: 20050425
  8. RISUMIC (AMEZINIUM METILSULFATE) [Suspect]
     Indication: BLOOD PRESSURE DECREASED
     Dosage: SEE IMAGE
     Route: 048
     Dates: start: 20050421
  9. TAGAMET [Concomitant]
  10. ASPIRIN [Concomitant]
  11. CARVEDILOL [Concomitant]
  12. LIDOCAINE HCL INJ [Concomitant]
  13. EPOGEN [Concomitant]
  14. SPONGEL (GELATIN) [Concomitant]
  15. KETOPROFEN [Concomitant]
  16. HAPSTAR (ENOXOLONE, DIPHENHYDRAMINE HYDROCHLORIDE, METHYL SALICYLATE, [Concomitant]
  17. BETAMETHASONE VALERATE                     (BETAMETHASONE VALERATE) [Concomitant]
  18. SENNA ALEXANDRINA (SENNA ALEXANDRINA) [Concomitant]
  19. KAYEXALATE [Concomitant]
  20. CARNACULIN (PANCREAS EXTRACT) [Concomitant]
  21. HEPARIN [Concomitant]
  22. BASEN (VOGLIBOSE) [Concomitant]
  23. KARY UNI (PIRENOXINE) [Concomitant]
  24. OXAROL (MAXACALCITOL) [Concomitant]
  25. SULPYRIDE (METAMIZOLE SODIUM) [Concomitant]
  26. CAFFEINE AND SODIUIM BENZOATE (CAFFEINE AND SODIUM BENZOATE) [Concomitant]
  27. ALLERGIN [Concomitant]
  28. MEDICON (DEXTROMETHORPHAN HYDROBROMIDE) [Concomitant]
  29. METHYLEPHEDRINE (METHYLEPHEDRINE) [Concomitant]
  30. ACETAMINOPHEN [Concomitant]

REACTIONS (8)
  - BLOOD PRESSURE DECREASED [None]
  - HYPERHIDROSIS [None]
  - PALLOR [None]
  - SUPRAVENTRICULAR EXTRASYSTOLES [None]
  - SUPRAVENTRICULAR TACHYCARDIA [None]
  - TACHYARRHYTHMIA [None]
  - UNEVALUABLE EVENT [None]
  - UNRESPONSIVE TO VERBAL STIMULI [None]
